FAERS Safety Report 5394880-3 (Version None)
Quarter: 2007Q3

REPORT INFORMATION
  Report Type: 
  Country: None (occurrence: None)
  Receive Date: 20070720
  Receipt Date: 20070710
  Transmission Date: 20080115
  Serious: Yes (Hospitalization)
  Sender: FDA-Public Use
  Company Number: 200701IM000044

PATIENT
  Age: 72 Year
  Sex: Male
  Weight: 78 kg

DRUGS (2)
  1. INTERFERON GAMMA-1B [Suspect]
     Indication: IDIOPATHIC PULMONARY FIBROSIS
     Dosage: 1 VIAL OTH, SUBCUTANEOUS
     Route: 058
     Dates: start: 20050715
  2. IBUPROFEN [Concomitant]

REACTIONS (6)
  - ASTIGMATISM [None]
  - MYOPIA [None]
  - PRESBYOPIA [None]
  - RETINAL ARTERY EMBOLISM [None]
  - RETINAL ARTERY OCCLUSION [None]
  - VISUAL FIELD DEFECT [None]
